FAERS Safety Report 5446829-2 (Version None)
Quarter: 2007Q3

REPORT INFORMATION
  Report Type: 
  Country: None (occurrence: None)
  Receive Date: 20070907
  Receipt Date: 20070830
  Transmission Date: 20080115
  Serious: Yes (Hospitalization)
  Sender: FDA-Public Use
  Company Number: FR-ABBOTT-07P-056-0415768-00

PATIENT
  Sex: Male

DRUGS (8)
  1. TARKA [Suspect]
     Indication: HYPERTENSION
     Route: 048
     Dates: start: 20070328, end: 20070509
  2. VALPROMIDE [Concomitant]
     Indication: DRUG USE FOR UNKNOWN INDICATION
  3. FUROSEMIDE [Concomitant]
     Indication: DRUG USE FOR UNKNOWN INDICATION
  4. PREDNISONE [Concomitant]
     Indication: DRUG USE FOR UNKNOWN INDICATION
  5. CHLORHYDRATE TRAMADOL [Concomitant]
     Indication: DRUG USE FOR UNKNOWN INDICATION
  6. ESOMEPRAZOLE MAGNESIUM [Concomitant]
     Indication: DRUG USE FOR UNKNOWN INDICATION
  7. PRAZEPAM [Concomitant]
     Indication: DRUG USE FOR UNKNOWN INDICATION
  8. CALCIUM CARBONATE [Concomitant]
     Indication: DRUG USE FOR UNKNOWN INDICATION

REACTIONS (4)
  - CELL DEATH [None]
  - CHOLESTASIS [None]
  - HEPATITIS [None]
  - JAUNDICE [None]
